FAERS Safety Report 17141194 (Version 7)
Quarter: 2020Q3

REPORT INFORMATION
  Report Type: Report from Study
  Country: IL (occurrence: IL)
  Receive Date: 20191211
  Receipt Date: 20200909
  Transmission Date: 20201102
  Serious: Yes (Hospitalization)
  Sender: FDA-Public Use
  Company Number: IL-IPSEN BIOPHARMACEUTICALS, INC.-2019-23756

PATIENT
  Age: 70 Year
  Sex: Female

DRUGS (11)
  1. IMODIUM [Concomitant]
     Active Substance: LOPERAMIDE HYDROCHLORIDE
  2. INHALER [Concomitant]
     Active Substance: UNSPECIFIED INGREDIENT
     Dosage: *2 (NOT SPECIFIED WHICH)
  3. SOMATULINE AUTOGEL [Suspect]
     Active Substance: LANREOTIDE ACETATE
     Route: 058
     Dates: start: 20191124, end: 20200226
  4. SOMATULINE AUTOGEL [Suspect]
     Active Substance: LANREOTIDE ACETATE
     Indication: NEUROENDOCRINE TUMOUR
     Dosage: SITE: BUTTOCKS
     Route: 058
     Dates: start: 20160709, end: 201806
  5. CLONEX [Concomitant]
  6. PROFEX [Concomitant]
  7. SOMATULINE AUTOGEL [Suspect]
     Active Substance: LANREOTIDE ACETATE
     Route: 058
     Dates: start: 20200526
  8. ACTIVE CHARCOAL [Concomitant]
     Active Substance: ACTIVATED CHARCOAL
  9. CREON [Concomitant]
     Active Substance: PANCRELIPASE AMYLASE\PANCRELIPASE LIPASE\PANCRELIPASE PROTEASE
  10. SOMATULINE AUTOGEL [Suspect]
     Active Substance: LANREOTIDE ACETATE
     Route: 058
     Dates: start: 20180620, end: 201911
  11. LOSEC [Concomitant]
     Active Substance: OMEPRAZOLE
     Dates: end: 2017

REACTIONS (13)
  - Flatulence [Recovering/Resolving]
  - Dyspnoea [Recovering/Resolving]
  - Alopecia [Unknown]
  - Diarrhoea [Recovering/Resolving]
  - Abdominal distension [Unknown]
  - Haemorrhage [Unknown]
  - Device breakage [Not Recovered/Not Resolved]
  - Nausea [Recovered/Resolved]
  - Iron deficiency [Unknown]
  - Rash [Not Recovered/Not Resolved]
  - Blood chromogranin A increased [Unknown]
  - Off label use [Unknown]
  - Pruritus [Not Recovered/Not Resolved]

NARRATIVE: CASE EVENT DATE: 20180620
